FAERS Safety Report 10255617 (Version 1)
Quarter: 2014Q2

REPORT INFORMATION
  Report Type: Spontaneous
  Country: SE (occurrence: None)
  Receive Date: 20140620
  Receipt Date: 20140620
  Transmission Date: 20141212
  Serious: Yes (Hospitalization, Other)
  Sender: FDA-Public Use
  Company Number: KAD201406-000621

PATIENT
  Age: 65 Year
  Sex: Female

DRUGS (1)
  1. ANASTROZOLE [Suspect]

REACTIONS (14)
  - Hypercalcaemia [None]
  - Blood parathyroid hormone increased [None]
  - Metastases to bone marrow [None]
  - Metastases to eye [None]
  - Hyperparathyroidism [None]
  - Osteopenia [None]
  - Weight decreased [None]
  - Fatigue [None]
  - Thirst [None]
  - Fluid retention [None]
  - Blood calcium decreased [None]
  - Refusal of treatment by patient [None]
  - Blood alkaline phosphatase increased [None]
  - Breast cancer recurrent [None]
